FAERS Safety Report 9475658 (Version 1)
Quarter: 2013Q3

REPORT INFORMATION
  Report Type: Spontaneous
  Country: AU (occurrence: AU)
  Receive Date: 20130826
  Receipt Date: 20130826
  Transmission Date: 20140515
  Serious: Yes (Other)
  Sender: FDA-Public Use
  Company Number: PHHY2013AU090868

PATIENT
  Age: 63 Year
  Sex: Male

DRUGS (3)
  1. AMLODIPINE, VALSARTAN [Suspect]
     Dosage: UNK UKN, UNK
  2. METFORMIN [Suspect]
     Dosage: UNK UKN, UNK
  3. CELEBREX [Suspect]
     Dosage: UNK UKN, UNK

REACTIONS (3)
  - Creatinine renal clearance decreased [Unknown]
  - Haematuria [Unknown]
  - Blood creatinine increased [Unknown]
